FAERS Safety Report 15412755 (Version 1)
Quarter: 2018Q3

REPORT INFORMATION
  Report Type: Report from Study
  Country: BR (occurrence: BR)
  Receive Date: 20180921
  Receipt Date: 20180921
  Transmission Date: 20181010
  Serious: Yes (Other)
  Sender: FDA-Public Use
  Company Number: PHHY2013BR087374

PATIENT
  Sex: Female
  Weight: 90 kg

DRUGS (10)
  1. DIOVAN HCT [Suspect]
     Active Substance: HYDROCHLOROTHIAZIDE\VALSARTAN
     Indication: HYPERTENSION
     Dosage: 1 DF, (5 MG HYDROCHLOROTHIAZIDE, VALSARTAN 160MG), A DAY
     Route: 065
  2. DIOVAN [Suspect]
     Active Substance: VALSARTAN
     Indication: HYPERTENSION
     Dosage: 1 DF (80 MG), A DAY
     Route: 048
  3. DIOVAN HCT [Suspect]
     Active Substance: HYDROCHLOROTHIAZIDE\VALSARTAN
     Dosage: 1 DF (HYDROCHLOROTHIAZIDE 25MG, VALSARTAN 160MG), UNK
     Route: 048
  4. DIOVAN HCT [Suspect]
     Active Substance: HYDROCHLOROTHIAZIDE\VALSARTAN
     Dosage: 1 DF (HYDROCHLOROTHIAZIDE 12.5MG, VALSARTAN 80MG), UNK
     Route: 065
  5. DIOVAN [Suspect]
     Active Substance: VALSARTAN
     Dosage: 320 MG
     Route: 065
  6. DIOVAN [Suspect]
     Active Substance: VALSARTAN
     Dosage: 1 DF (80 MG), A DAY
     Route: 048
  7. DIOVAN HCT [Suspect]
     Active Substance: HYDROCHLOROTHIAZIDE\VALSARTAN
     Dosage: 1 DF, (12.5 MG HYDROCHLOROTHIAZIDE, VALSARTAN 160MG), A DAY
     Route: 065
  8. DIOVAN HCT [Suspect]
     Active Substance: HYDROCHLOROTHIAZIDE\VALSARTAN
     Dosage: 1 DF, (/25 MG HYDROCHLOROTHIAZIDE, 320 MG VALSARTAN), A DAY
     Route: 048
  9. EXFORGE HCT [Suspect]
     Active Substance: AMLODIPINE BESYLATE\HYDROCHLOROTHIAZIDE\VALSARTAN
     Indication: HYPERTENSION
     Dosage: 1 DF, (/25 MG AMLODIPINE/5 MG HYDROCHLOROTHIAZIDE, 160 MG VALSARTAN) DAILY
     Route: 048
  10. METOPROLOL SUCCINATE. [Concomitant]
     Active Substance: METOPROLOL SUCCINATE
     Indication: MYOCARDIAL INFARCTION
     Route: 065

REACTIONS (5)
  - Loss of consciousness [Unknown]
  - Drug ineffective [Recovered/Resolved]
  - Heart rate increased [Unknown]
  - Blood pressure inadequately controlled [Recovered/Resolved]
  - Myocardial infarction [Recovering/Resolving]
